FAERS Safety Report 10098832 (Version 3)
Quarter: 2014Q2

REPORT INFORMATION
  Report Type: Spontaneous
  Country: US (occurrence: US)
  Receive Date: 20140423
  Receipt Date: 20140501
  Transmission Date: 20141212
  Serious: Yes (Other)
  Sender: FDA-Public Use
  Company Number: US-SA-2014SA042446

PATIENT
  Age: 26 Year
  Sex: Female

DRUGS (4)
  1. ZOLPIDEM TARTRATE [Suspect]
     Indication: INSOMNIA
     Route: 065
  2. URSO [Suspect]
     Indication: TOTAL BILE ACIDS INCREASED
     Route: 065
  3. COLESTYRAMINE [Suspect]
     Indication: TOTAL BILE ACIDS INCREASED
     Route: 065
  4. ALBUMIN [Concomitant]
     Dosage: 5%

REACTIONS (3)
  - Premature delivery [Unknown]
  - Drug effect incomplete [Unknown]
  - Exposure during pregnancy [Unknown]
